FAERS Safety Report 8004686-4 (Version None)
Quarter: 2011Q4

REPORT INFORMATION
  Report Type: 
  Country: None (occurrence: None)
  Receive Date: 20111223
  Receipt Date: 20111215
  Transmission Date: 20120403
  Serious: Yes (Other)
  Sender: FDA-Public Use
  Company Number: JP-JNJFOC-20111207683

PATIENT

DRUGS (2)
  1. FENTANYL-100 [Suspect]
     Indication: PAIN
     Route: 062
     Dates: end: 20111213
  2. MS CONTIN [Concomitant]
     Indication: PAIN
     Route: 048
     Dates: start: 20111212

REACTIONS (3)
  - WITHDRAWAL SYNDROME [None]
  - DEPRESSED LEVEL OF CONSCIOUSNESS [None]
  - FEELING COLD [None]
